FAERS Safety Report 23137599 (Version 3)
Quarter: 2023Q4

REPORT INFORMATION
  Report Type: Spontaneous
  Country: JP (occurrence: JP)
  Receive Date: 20231102
  Receipt Date: 20231224
  Transmission Date: 20240110
  Serious: Yes (Hospitalization, Other)
  Sender: FDA-Public Use
  Company Number: JP-shionogi-202312628

PATIENT
  Age: 63 Year
  Sex: Female

DRUGS (2)
  1. CYCLOPHOSPHAMIDE [Suspect]
     Active Substance: CYCLOPHOSPHAMIDE
     Indication: Breast cancer recurrent
     Dosage: CHEMOTHERAPY (EC THERAPY) CONSISTING OF LOW DOSE
     Route: 065
  2. EPIRUBICIN [Suspect]
     Active Substance: EPIRUBICIN
     Indication: Breast cancer recurrent
     Dosage: CHEMOTHERAPY (EC THERAPY) TOTAL 960 MG
     Route: 065

REACTIONS (6)
  - Chronic myocarditis [Unknown]
  - Dyspnoea exertional [Unknown]
  - Left ventricular failure [Recovering/Resolving]
  - Low cardiac output syndrome [Recovering/Resolving]
  - Atrial fibrillation [Unknown]
  - Lymphocytic infiltration [Recovering/Resolving]
